FAERS Safety Report 24560323 (Version 1)
Quarter: 2024Q4

REPORT INFORMATION
  Report Type: Spontaneous
  Country: US (occurrence: US)
  Receive Date: 20241029
  Receipt Date: 20241029
  Transmission Date: 20250115
  Serious: No
  Sender: ASTELLAS
  Company Number: US-ASTELLAS-2024-AER-014420

PATIENT
  Age: 66 Year
  Sex: Female

DRUGS (4)
  1. VEOZAH [Suspect]
     Active Substance: FEZOLINETANT
     Indication: Hot flush
     Route: 065
  2. DEPO-ESTRADIOL [Concomitant]
     Active Substance: ESTRADIOL CYPIONATE
     Indication: Product used for unknown indication
     Dosage: VIAL FORMULATION, INJECTABLE, 1 CC EVERY 4 TO 6 WEEKS.
     Route: 065
  3. AMLODIPINE [Concomitant]
     Active Substance: AMLODIPINE BESYLATE
     Indication: Product used for unknown indication
     Route: 065
  4. XANAX [Concomitant]
     Active Substance: ALPRAZOLAM
     Indication: Anxiety
     Dosage: CAN TAKE UP TO TWICE A DAY BUT DOES NOT TWICE A DAY ITS PRESCRIBED TO TAKE TWICE A DAY HOWEVER TAKIN
     Route: 048

REACTIONS (1)
  - Drug ineffective [Unknown]
